FAERS Safety Report 9857137 (Version 4)
Quarter: 2014Q2

REPORT INFORMATION
  Report Type: Spontaneous
  Country: JP (occurrence: JP)
  Receive Date: 20140130
  Receipt Date: 20140414
  Transmission Date: 20141212
  Serious: Yes (Life-Threatening, Other)
  Sender: FDA-Public Use
  Company Number: JP-UCBSA-110858

PATIENT
  Age: 45 Year
  Sex: Female

DRUGS (6)
  1. E KEPPRA [Suspect]
     Indication: EPILEPSY
     Route: 048
     Dates: start: 20130911, end: 20131006
  2. E KEPPRA [Suspect]
     Indication: EPILEPSY
     Dosage: VIA TUBE
     Route: 048
     Dates: start: 20110914, end: 20130910
  3. E KEPPRA [Suspect]
     Indication: EPILEPSY
     Dosage: VIA TUBE
     Route: 048
     Dates: start: 20110202, end: 20110913
  4. ALEVIATIN [Concomitant]
     Dosage: 300 MG DAILY
     Route: 048
     Dates: start: 20121002
  5. HYSERENIN [Concomitant]
     Dosage: 1600MG DAILY
     Route: 048
     Dates: start: 20121002
  6. RIVOTRIL [Concomitant]
     Dosage: DAILY DOSE: 6 MG
     Route: 048
     Dates: start: 20121002

REACTIONS (3)
  - Status epilepticus [Recovering/Resolving]
  - Respiratory arrest [Recovered/Resolved]
  - Pyrexia [Recovered/Resolved]
